FAERS Safety Report 6310040-3 (Version None)
Quarter: 2009Q3

REPORT INFORMATION
  Report Type: 
  Country: None (occurrence: None)
  Receive Date: 20090814
  Receipt Date: 20090807
  Transmission Date: 20100115
  Serious: Yes (Other)
  Sender: FDA-Public Use
  Company Number: US-AVENTIS-200917102US

PATIENT
  Sex: Male

DRUGS (6)
  1. LANTUS [Suspect]
     Route: 058
     Dates: start: 20040101
  2. OPTICLIK (INSULIN INJECTION PEN) [Suspect]
     Dosage: DOSE: UNK
     Dates: start: 20040101
  3. METFORMIN HCL [Concomitant]
     Dosage: DOSE: UNK
  4. LASIX [Concomitant]
     Dosage: DOSE: UNK
  5. COZAAR [Concomitant]
     Dosage: DOSE: UNK
  6. XALATAN [Concomitant]
     Dosage: DOSE: UNK

REACTIONS (4)
  - CATARACT [None]
  - DRY EYE [None]
  - EYE SWELLING [None]
  - VISUAL IMPAIRMENT [None]
